FAERS Safety Report 4750699-5 (Version None)
Quarter: 2005Q3

REPORT INFORMATION
  Report Type: 
  Country: None (occurrence: None)
  Receive Date: 20050823
  Receipt Date: 20050816
  Transmission Date: 20060218
  Serious: Yes (Hospitalization, Other)
  Sender: FDA-Public Use
  Company Number: 200516247US

PATIENT
  Age: 35 Year
  Sex: Male

DRUGS (1)
  1. ALLEGRA-D [Suspect]
     Indication: RHINITIS ALLERGIC
     Dosage: DOSE: 60/120
     Route: 048
     Dates: start: 19990512, end: 19990513

REACTIONS (7)
  - ASTHMA [None]
  - COUGH [None]
  - DYSPNOEA [None]
  - FEELING COLD [None]
  - HEART RATE INCREASED [None]
  - PNEUMONIA [None]
  - UNEVALUABLE EVENT [None]
